FAERS Safety Report 6652582-7 (Version None)
Quarter: 2010Q1

REPORT INFORMATION
  Report Type: 
  Country: None (occurrence: None)
  Receive Date: 20100326
  Receipt Date: 20100316
  Transmission Date: 20100710
  Serious: Yes (Hospitalization)
  Sender: FDA-Public Use
  Company Number: US-BIOGENIDEC-2010BI005395

PATIENT
  Age: 36 Year
  Sex: Female

DRUGS (11)
  1. TYSABRI [Suspect]
     Indication: MULTIPLE SCLEROSIS
     Route: 042
     Dates: start: 20080118, end: 20090423
  2. TYSABRI [Suspect]
     Route: 042
     Dates: start: 20100108
  3. BACLOFEN [Concomitant]
     Indication: URINARY TRACT INFECTION
     Route: 048
  4. ROBAXIN [Concomitant]
     Route: 048
  5. METOPROLOL [Concomitant]
     Route: 048
  6. ZOLOFT [Concomitant]
     Indication: DEPRESSION
     Route: 048
     Dates: start: 20100101
  7. SIMVASTATIN [Concomitant]
     Route: 048
  8. TOPAMAX [Concomitant]
     Route: 048
  9. TRAZODONE HCL [Concomitant]
     Route: 048
  10. ALBUTEROL [Concomitant]
     Indication: DYSPNOEA
     Route: 055
  11. METFORMIN HCL [Concomitant]
     Indication: DIABETES MELLITUS
     Dates: end: 20100204

REACTIONS (3)
  - MULTIPLE SCLEROSIS RELAPSE [None]
  - RENAL FAILURE ACUTE [None]
  - URINARY TRACT INFECTION [None]
